FAERS Safety Report 6392481-1 (Version None)
Quarter: 2009Q4

REPORT INFORMATION
  Report Type: 
  Country: None (occurrence: None)
  Receive Date: 20091007
  Receipt Date: 20091005
  Transmission Date: 20100525
  Serious: Yes (Death)
  Sender: FDA-Public Use
  Company Number: ES-SANOFI-SYNTHELABO-F01200900961

PATIENT
  Sex: Male

DRUGS (5)
  1. DEXAMETHASONE TAB [Concomitant]
     Dosage: UNK
     Route: 065
     Dates: start: 20070327, end: 20090805
  2. BEVACIZUMAB [Suspect]
     Route: 042
     Dates: start: 20090805, end: 20090805
  3. CAPECITABINE [Suspect]
     Dosage: DAYS 1-14
     Route: 048
     Dates: start: 20070815, end: 20070815
  4. OXALIPLATIN [Suspect]
     Indication: COLORECTAL CANCER METASTATIC
     Route: 041
     Dates: start: 20070801, end: 20070801
  5. GRANISETRON HCL [Concomitant]
     Dosage: UNK
     Route: 065
     Dates: start: 20070327, end: 20090805

REACTIONS (1)
  - DYSPNOEA [None]
